FAERS Safety Report 15310398 (Version 1)
Quarter: 2018Q3

REPORT INFORMATION
  Report Type: Spontaneous
  Country: US (occurrence: US)
  Receive Date: 20180823
  Receipt Date: 20180823
  Transmission Date: 20181010
  Serious: No
  Sender: FDA-Public Use
  Company Number: US-MYLANLABS-2018M1029885

PATIENT
  Age: 77 Year
  Sex: Male
  Weight: 2.2 kg

DRUGS (2)
  1. SIMVASTATIN ZENTIVA [Concomitant]
     Indication: BLOOD CHOLESTEROL INCREASED
     Dosage: UNK
  2. MUSE [Suspect]
     Active Substance: ALPROSTADIL
     Indication: ERECTILE DYSFUNCTION
     Dosage: 250 MG, UNK
     Dates: start: 20180422

REACTIONS (6)
  - Urinary tract infection [Not Recovered/Not Resolved]
  - Drug ineffective [Unknown]
  - Pollakiuria [Unknown]
  - Blood urine present [Recovering/Resolving]
  - Urethral injury [Unknown]
  - Genital pain [Recovering/Resolving]

NARRATIVE: CASE EVENT DATE: 20180422
